FAERS Safety Report 24631965 (Version 1)
Quarter: 2024Q4

REPORT INFORMATION
  Report Type: Spontaneous
  Country: CA (occurrence: CA)
  Receive Date: 20241118
  Receipt Date: 20241118
  Transmission Date: 20250114
  Serious: Yes (Other)
  Sender: PFIZER
  Company Number: CA-PFIZER INC-202300173701

PATIENT
  Age: 64 Year
  Sex: Male
  Weight: 68.5 kg

DRUGS (4)
  1. RUXIENCE [Suspect]
     Active Substance: RITUXIMAB-PVVR
     Indication: SLE arthritis
     Dosage: 1 G, DAY 1 AND 15 (EVERY 6 MONTH)
     Route: 042
     Dates: start: 20230719
  2. RUXIENCE [Suspect]
     Active Substance: RITUXIMAB-PVVR
     Indication: Pleural effusion
     Dosage: 1000 MG, DAY 1 AND 15 (EVERY 6 MONTH)
     Route: 042
     Dates: start: 20240131
  3. RUXIENCE [Suspect]
     Active Substance: RITUXIMAB-PVVR
     Indication: Vasculitis
     Dosage: 1000 MG, DAY 1 AND 15 (EVERY 6 MONTH)[1000 MG, AFTER 2 WEEKS AND 6DAYS]
     Route: 042
     Dates: start: 20240220
  4. RUXIENCE [Suspect]
     Active Substance: RITUXIMAB-PVVR
     Indication: Arthritis
     Dosage: 500 MG DAY 1 RETREATMENT (EVERY 6 MONTH)
     Route: 042
     Dates: start: 20241113

REACTIONS (4)
  - Cataract [Not Recovered/Not Resolved]
  - Hereditary motor and sensory neuropathy [Not Recovered/Not Resolved]
  - Off label use [Unknown]
  - Inappropriate schedule of product administration [Unknown]

NARRATIVE: CASE EVENT DATE: 20230101
